FAERS Safety Report 8233336-7 (Version None)
Quarter: 2012Q1

REPORT INFORMATION
  Report Type: 
  Country: None (occurrence: None)
  Receive Date: 20120323
  Receipt Date: 20120323
  Transmission Date: 20120608
  Serious: Yes (Hospitalization, Other)
  Sender: FDA-Public Use
  Company Number: None

PATIENT
  Age: 67 Year
  Sex: Female
  Weight: 81.5 kg

DRUGS (1)
  1. TELAPREVIR [Suspect]
     Indication: HEPATITIS C
     Dosage: 375 X 2 BID PO
     Route: 048

REACTIONS (3)
  - PYREXIA [None]
  - DRUG ERUPTION [None]
  - DERMATITIS [None]
